FAERS Safety Report 7545123-3 (Version None)
Quarter: 2011Q2

REPORT INFORMATION
  Report Type: 
  Country: None (occurrence: None)
  Receive Date: 20110610
  Receipt Date: 20110610
  Transmission Date: 20111010
  Serious: No
  Sender: FDA-Public Use
  Company Number: None

PATIENT
  Age: 6 Year
  Sex: Female
  Weight: 29.4838 kg

DRUGS (1)
  1. HYDROCORTISONE BUTYRATE [Suspect]
     Indication: PSORIASIS
     Dosage: 60MG
     Dates: start: 20110524, end: 20110525

REACTIONS (3)
  - BODY TEMPERATURE INCREASED [None]
  - HEADACHE [None]
  - SOMNOLENCE [None]
